FAERS Safety Report 9732578 (Version 3)
Quarter: 2014Q1

REPORT INFORMATION
  Report Type: Spontaneous
  Country: US (occurrence: US)
  Receive Date: 20131205
  Receipt Date: 20140203
  Transmission Date: 20141002
  Serious: No
  Sender: FDA-Public Use
  Company Number: US-PFIZER INC-2013346743

PATIENT
  Age: 68 Year
  Sex: Male
  Weight: 90.7 kg

DRUGS (2)
  1. LYRICA [Suspect]
     Indication: NEURITIS
     Dosage: 150 MG, 3X/DAY
     Dates: start: 2009
  2. LYRICA [Suspect]
     Indication: NEURALGIA
     Dosage: UNK

REACTIONS (7)
  - Nerve compression [Recovered/Resolved]
  - Bladder pain [Recovered/Resolved]
  - Scrotal pain [Recovered/Resolved]
  - Drug ineffective [Unknown]
  - Genital pain [Unknown]
  - Pre-existing condition improved [Unknown]
  - Therapeutic response unexpected [Unknown]
